FAERS Safety Report 9015794 (Version 1)
Quarter: 2013Q1

REPORT INFORMATION
  Report Type: Spontaneous
  Country: US (occurrence: None)
  Receive Date: 20130102
  Receipt Date: 20130102
  Transmission Date: 20140127
  Serious: Yes (Other)
  Sender: FDA-Public Use
  Company Number: US-CLINIGEN HEALTHCARE LIMITED-003017

PATIENT
  Age: 47 Year
  Sex: Female

DRUGS (2)
  1. FOSCAVIR (FOSCAVIR) [Suspect]
     Indication: CYTOMEGALOVIRUS CHORIORETINITIS
  2. VALGANCICLOVIR HYDROCHLORIDE (VALGANCICLOVIR HYDROCHLORIDE) [Concomitant]

REACTIONS (4)
  - Retinal disorder [None]
  - Visual acuity reduced [None]
  - Uveitis [None]
  - Macular oedema [None]
